FAERS Safety Report 8965637 (Version 1)
Quarter: 2012Q4

REPORT INFORMATION
  Report Type: Spontaneous
  Country: US (occurrence: None)
  Receive Date: 20121212
  Receipt Date: 20121212
  Transmission Date: 20130627
  Serious: Yes (Other)
  Sender: FDA-Public Use
  Company Number: None

PATIENT
  Age: 36 Year
  Sex: Male
  Weight: 63.5 kg

DRUGS (1)
  1. PROAIR HFA [Suspect]
     Dosage: 90mcg Daily po
     Route: 048

REACTIONS (4)
  - Device malfunction [None]
  - Device occlusion [None]
  - Product packaging quantity issue [None]
  - Product quality issue [None]
